FAERS Safety Report 21601395 (Version 1)
Quarter: 2022Q4

REPORT INFORMATION
  Report Type: Spontaneous
  Country: US (occurrence: US)
  Receive Date: 20221116
  Receipt Date: 20221116
  Transmission Date: 20230112
  Serious: Yes (Hospitalization)
  Sender: FDA-Public Use
  Company Number: US-LUPIN PHARMACEUTICALS INC.-2022-13482

PATIENT
  Age: 50 Year
  Sex: Male

DRUGS (7)
  1. METHYLPREDNISOLONE [Suspect]
     Active Substance: METHYLPREDNISOLONE
     Indication: Thrombosis with thrombocytopenia syndrome
     Dosage: 125 MG (ON THE FIRST DAY)
     Route: 065
  2. ARGATROBAN [Suspect]
     Active Substance: ARGATROBAN
     Indication: Thrombosis with thrombocytopenia syndrome
     Dosage: UNK
     Route: 065
  3. BIVALIRUDIN [Suspect]
     Active Substance: BIVALIRUDIN
     Indication: Thrombosis with thrombocytopenia syndrome
     Dosage: UNK
     Route: 042
  4. RITUXIMAB [Suspect]
     Active Substance: RITUXIMAB
     Indication: Thrombosis with thrombocytopenia syndrome
     Dosage: 375 MILLIGRAM/SQ. METER (ON DAY 17)
     Route: 065
  5. Immunoglobulin [Concomitant]
     Indication: Thrombosis with thrombocytopenia syndrome
     Dosage: 01 GRAM PER KILOGRAM, QD (FOR 2 DAYS BY IDEAL BODY WEIGHT)
     Route: 042
  6. Immunoglobulin [Concomitant]
     Dosage: 1 GRAM PER KILOGRAM (ON DAY 17 WITH 2 ADDITIONAL DOSES)
     Route: 042
  7. PREDNISONE [Concomitant]
     Active Substance: PREDNISONE
     Indication: Thrombosis with thrombocytopenia syndrome
     Dosage: UNK (INITIATED ON DAY 7 WITH A PROLONGED TAPER)
     Route: 048

REACTIONS (3)
  - Drug ineffective [Recovering/Resolving]
  - Condition aggravated [Recovering/Resolving]
  - Hepatic function abnormal [Recovering/Resolving]
